FAERS Safety Report 12526790 (Version 1)
Quarter: 2016Q3

REPORT INFORMATION
  Report Type: Spontaneous
  Country: US (occurrence: US)
  Receive Date: 20160705
  Receipt Date: 20160705
  Transmission Date: 20161109
  Serious: No
  Sender: FDA-Public Use
  Company Number: US-PFIZER INC-2016298275

PATIENT
  Age: 78 Year
  Sex: Female

DRUGS (1)
  1. SUTENT [Suspect]
     Active Substance: SUNITINIB MALATE
     Indication: RENAL CANCER
     Dosage: 25 MG, CYCLIC (DAILY, 3 WEEKS ON / 3 WEEKS OFF)
     Dates: start: 20131031

REACTIONS (2)
  - Hyperkeratosis [Recovering/Resolving]
  - Pain in extremity [Recovering/Resolving]
